FAERS Safety Report 25939647 (Version 1)
Quarter: 2025Q4

REPORT INFORMATION
  Report Type: Spontaneous
  Country: US (occurrence: US)
  Receive Date: 20251020
  Receipt Date: 20251020
  Transmission Date: 20260119
  Serious: Yes (Hospitalization, Other)
  Sender: ALEMBIC
  Company Number: US-ALEMBIC PHARMACUETICALS LIMITED-2025SCAL001396

PATIENT

DRUGS (4)
  1. QUETIAPINE FUMARATE [Suspect]
     Active Substance: QUETIAPINE FUMARATE
     Indication: Attention deficit hyperactivity disorder
     Dosage: 25 MILLIGRAM, BID
     Route: 065
  2. CLONIDINE HYDROCHLORIDE [Suspect]
     Active Substance: CLONIDINE HYDROCHLORIDE
     Indication: Attention deficit hyperactivity disorder
     Dosage: 0.05 MILLIGRAM, BID
     Route: 065
  3. ATOMOXETINE [Suspect]
     Active Substance: ATOMOXETINE
     Indication: Attention deficit hyperactivity disorder
     Dosage: 20 MILLIGRAM, QD
     Route: 065
  4. HALOPERIDOL [Suspect]
     Active Substance: HALOPERIDOL
     Indication: Aggression
     Dosage: 5 MILLIGRAM
     Route: 030

REACTIONS (15)
  - Catatonia [Recovering/Resolving]
  - Fatigue [Unknown]
  - Musculoskeletal stiffness [Unknown]
  - Somnolence [Recovering/Resolving]
  - Hypophagia [Recovered/Resolved]
  - Muscle rigidity [Recovered/Resolved]
  - Protrusion tongue [Unknown]
  - Gaze palsy [Recovered/Resolved]
  - Reduced facial expression [Unknown]
  - Blood creatine phosphokinase increased [Unknown]
  - Dystonia [Recovering/Resolving]
  - Muscle spasms [Unknown]
  - Tongue spasm [Recovered/Resolved]
  - Tachycardia [Unknown]
  - Drug withdrawal syndrome [Unknown]
